FAERS Safety Report 7971736-0 (Version None)
Quarter: 2011Q4

REPORT INFORMATION
  Report Type: 
  Country: None (occurrence: None)
  Receive Date: 20111212
  Receipt Date: 20111201
  Transmission Date: 20120403
  Serious: Yes (Hospitalization)
  Sender: FDA-Public Use
  Company Number: DE-ASTRAZENECA-2011SE36371

PATIENT
  Age: 21810 Day
  Sex: Male
  Weight: 68 kg

DRUGS (1)
  1. IRESSA [Suspect]
     Indication: NON-SMALL CELL LUNG CANCER
     Route: 048
     Dates: start: 20110420, end: 20110616

REACTIONS (2)
  - DYSPNOEA [None]
  - INSOMNIA [None]
